FAERS Safety Report 6336203-9 (Version None)
Quarter: 2009Q3

REPORT INFORMATION
  Report Type: 
  Country: None (occurrence: None)
  Receive Date: 20090831
  Receipt Date: 20090831
  Transmission Date: 20100115
  Serious: Yes (Other)
  Sender: FDA-Public Use
  Company Number: None

PATIENT
  Age: 42 Year
  Sex: Female
  Weight: 81.6475 kg

DRUGS (1)
  1. ALEVE [Suspect]
     Dosage: 220 MG 2 A DAY PO
     Route: 048
     Dates: start: 20090815, end: 20090827

REACTIONS (3)
  - DEPRESSION [None]
  - FEELING OF DESPAIR [None]
  - IMPAIRED WORK ABILITY [None]
